FAERS Safety Report 23589327 (Version 2)
Quarter: 2024Q1

REPORT INFORMATION
  Report Type: Spontaneous
  Country: FR (occurrence: FR)
  Receive Date: 20240303
  Receipt Date: 20240311
  Transmission Date: 20240410
  Serious: Yes (Death, Life-Threatening, Other)
  Sender: FDA-Public Use
  Company Number: FR-ELERTE-202400010

PATIENT

DRUGS (18)
  1. IBUPROFEN [Suspect]
     Active Substance: IBUPROFEN
     Indication: Back pain
     Dosage: UNK(UNKTHERAPY START DATE: //2016 THERAPY END DATE: //2016)
     Route: 048
     Dates: start: 2016, end: 2016
  2. CLOTIAZEPAM [Interacting]
     Active Substance: CLOTIAZEPAM
     Indication: Product used for unknown indication
     Dosage: UNK
  3. KETAMINE [Suspect]
     Active Substance: KETAMINE
     Indication: Back pain
     Dosage: UNK (UNKTHERAPY START DATE: //2016 THERAPY END DATE: //2016)
     Dates: start: 2016, end: 2016
  4. TRAMADOL HYDROCHLORIDE [Interacting]
     Active Substance: TRAMADOL HYDROCHLORIDE
     Indication: Back pain
     Dosage: UNK(UNKTHERAPY START DATE: //2016 THERAPY END DATE: //2016)
     Dates: start: 2016, end: 2016
  5. VALIUM [Interacting]
     Active Substance: DIAZEPAM
     Indication: Product used for unknown indication
     Dosage: UNK
  6. PRAZEPAM [Interacting]
     Active Substance: PRAZEPAM
     Indication: Product used for unknown indication
     Dosage: UNK
  7. THIOCOLCHICOSIDE [Suspect]
     Active Substance: THIOCOLCHICOSIDE
     Indication: Product used for unknown indication
     Dosage: UNK
  8. PAROXETINE MESYLATE [Suspect]
     Active Substance: PAROXETINE MESYLATE
     Indication: Back pain
     Dosage: UNK(PAROXETINE 20 MG/UNKTHERAPY START DATE: //2016 THERAPY END DATE: //2016 )
     Dates: start: 2016, end: 2016
  9. CODEINE PHOSPHATE\IBUPROFEN [Suspect]
     Active Substance: CODEINE PHOSPHATE\IBUPROFEN
     Indication: Back pain
     Dosage: 1 DF(1 DOSAGE FORMTHERAPY START DATE: //2016 THERAPY END DATE: //2016)
     Route: 048
     Dates: start: 2016, end: 2016
  10. ETIFOXINE [Suspect]
     Active Substance: ETIFOXINE
     Indication: Product used for unknown indication
     Dosage: UNK
  11. SKENAN [Interacting]
     Active Substance: MORPHINE SULFATE
     Indication: Product used for unknown indication
     Dosage: UNK
  12. SKENAN [Interacting]
     Active Substance: MORPHINE SULFATE
     Indication: Back pain
     Dosage: 1 DF (THERAPY START DATE: //2016THERAPY END DATE: //2016 )
     Dates: start: 2016, end: 2016
  13. OXYCONTIN [Interacting]
     Active Substance: OXYCODONE HYDROCHLORIDE
     Indication: Product used for unknown indication
     Dosage: UNK
  14. CLOBAZAM [Interacting]
     Active Substance: CLOBAZAM
     Indication: Product used for unknown indication
     Dosage: UNK
  15. ARTANE [Suspect]
     Active Substance: TRIHEXYPHENIDYL HYDROCHLORIDE
     Indication: Product used for unknown indication
     Dosage: UNK
  16. QUETIAPINE FUMARATE [Suspect]
     Active Substance: QUETIAPINE FUMARATE
     Indication: Product used for unknown indication
     Dosage: UNK
  17. MIANSERIN HYDROCHLORIDE [Suspect]
     Active Substance: MIANSERIN HYDROCHLORIDE
     Indication: Back pain
     Dosage: UNK(UNKTHERAPY START DATE: //2016 THERAPY END DATE: //2016)
     Dates: start: 2016, end: 2016
  18. FENTANYL [Interacting]
     Active Substance: FENTANYL\FENTANYL CITRATE
     Indication: Back pain
     Dosage: UNK(UNKTHERAPY START DATE: //2016 THERAPY END DATE: //2016/DUROGESIC)
     Route: 062
     Dates: start: 2016, end: 2016

REACTIONS (12)
  - Hepatitis acute [Fatal]
  - Coma [Fatal]
  - Respiratory depression [Fatal]
  - Encephalopathy [Fatal]
  - Cardiomyopathy [Fatal]
  - Myocarditis [Fatal]
  - Accidental poisoning [Fatal]
  - Somnolence [Fatal]
  - Overdose [Fatal]
  - Labelled drug-drug interaction issue [Fatal]
  - Myocardial infarction [Unknown]
  - Hepatic cytolysis [Unknown]

NARRATIVE: CASE EVENT DATE: 20160101
